FAERS Safety Report 16843503 (Version 1)
Quarter: 2019Q3

REPORT INFORMATION
  Report Type: Spontaneous
  Country: JP (occurrence: JP)
  Receive Date: 20190924
  Receipt Date: 20190924
  Transmission Date: 20191005
  Serious: Yes (Other)
  Sender: FDA-Public Use
  Company Number: JP-AMGEN-JPNSP2019111285

PATIENT
  Age: 41 Year
  Sex: Female

DRUGS (4)
  1. TAXOTERE [Concomitant]
     Active Substance: DOCETAXEL
     Indication: PRODUCT USED FOR UNKNOWN INDICATION
     Dosage: 80 MILLIGRAM
     Route: 041
     Dates: start: 20190515, end: 20190814
  2. G-LASTA [Suspect]
     Active Substance: PEGFILGRASTIM
     Indication: COLONY STIMULATING FACTOR THERAPY
     Dosage: 3.6 MILLIGRAM EVERY 3 TO 4 WEEKS, ON THE 2ND DAY AFTER COMPLETION OF CHEMOTHERAPY
     Route: 058
     Dates: start: 20190517, end: 20190816
  3. CYCLOPHOSPHAMIDE MONOHYDRATE [Concomitant]
     Active Substance: CYCLOPHOSPHAMIDE
     Indication: PRODUCT USED FOR UNKNOWN INDICATION
     Dosage: 582.48 MILLIGRAM
     Route: 041
     Dates: start: 20190515, end: 20190814
  4. CALONAL [Concomitant]
     Active Substance: ACETAMINOPHEN
     Indication: DIALYSIS
     Dosage: UNK
     Route: 048

REACTIONS (2)
  - Pyrexia [Unknown]
  - Red blood cell count decreased [Unknown]

NARRATIVE: CASE EVENT DATE: 2019
